FAERS Safety Report 16769696 (Version 1)
Quarter: 2019Q3

REPORT INFORMATION
  Report Type: Spontaneous
  Country: ES (occurrence: ES)
  Receive Date: 20190903
  Receipt Date: 20190903
  Transmission Date: 20191005
  Serious: Yes (Other)
  Sender: FDA-Public Use
  Company Number: ES-009507513-1908ESP009774

PATIENT
  Sex: Female
  Weight: 80 kg

DRUGS (1)
  1. NUVARING [Suspect]
     Active Substance: ETHINYL ESTRADIOL\ETONOGESTREL
     Indication: ORAL CONTRACEPTION
     Dosage: 1 VAGINAL DEVICE(1 DOSAGE FORM) AT A STRENGTH OF 0.120 MG / 0.015 MG EVERY 24 HOURS
     Route: 067
     Dates: start: 20190116

REACTIONS (3)
  - Malaise [Not Recovered/Not Resolved]
  - Loss of libido [Not Recovered/Not Resolved]
  - Abnormal behaviour [Not Recovered/Not Resolved]

NARRATIVE: CASE EVENT DATE: 20190630
